FAERS Safety Report 9675757 (Version 1)
Quarter: 2013Q4

REPORT INFORMATION
  Report Type: Report from Study
  Country: CA (occurrence: CA)
  Receive Date: 20131107
  Receipt Date: 20131107
  Transmission Date: 20140711
  Serious: Yes (Other)
  Sender: FDA-Public Use
  Company Number: CA-ABBVIE-13P-028-1165439-00

PATIENT
  Age: 43 Year
  Sex: Male

DRUGS (1)
  1. HUMIRA [Suspect]
     Indication: ANKYLOSING SPONDYLITIS
     Route: 058
     Dates: start: 20080211, end: 20131030

REACTIONS (8)
  - Blindness unilateral [Unknown]
  - Retinal tear [Unknown]
  - Retinal detachment [Unknown]
  - Cataract [Recovered/Resolved]
  - Uveitis [Unknown]
  - Ocular hyperaemia [Unknown]
  - Drug dose omission [Unknown]
  - Road traffic accident [Unknown]
